FAERS Safety Report 6666069-9 (Version None)
Quarter: 2010Q2

REPORT INFORMATION
  Report Type: 
  Country: None (occurrence: None)
  Receive Date: 20100402
  Receipt Date: 20100326
  Transmission Date: 20101027
  Serious: Yes (Other)
  Sender: FDA-Public Use
  Company Number: CHPA2010US04989

PATIENT
  Age: 88 Year
  Sex: Female

DRUGS (4)
  1. MAALOX ANTACID/ANTIGAS MAX QDTABS ASST (NCH) [Suspect]
     Indication: DYSPEPSIA
     Dosage: 2 DF, ONCE/SINGLE
     Route: 048
     Dates: start: 20100310, end: 20100310
  2. LIPITOR [Concomitant]
     Indication: BLOOD CHOLESTEROL
     Dosage: UNK
     Route: 048
  3. DIOVAN [Concomitant]
     Indication: HYPERTENSION
     Dosage: UNK
     Route: 048
  4. DILTIAZEM HCL [Concomitant]
     Indication: HYPERTENSION
     Dosage: UNK
     Route: 048

REACTIONS (13)
  - APHASIA [None]
  - CHOKING SENSATION [None]
  - DRUG LABEL CONFUSION [None]
  - DYSPHAGIA [None]
  - DYSPNOEA [None]
  - ELECTROCARDIOGRAM ABNORMAL [None]
  - HYPOAESTHESIA ORAL [None]
  - INSOMNIA [None]
  - LIP SWELLING [None]
  - OEDEMA MOUTH [None]
  - SWOLLEN TONGUE [None]
  - URTICARIA [None]
  - WRONG DRUG ADMINISTERED [None]
